FAERS Safety Report 9471213 (Version 1)
Quarter: 2013Q3

REPORT INFORMATION
  Report Type: Spontaneous
  Country: US (occurrence: US)
  Receive Date: 20130822
  Receipt Date: 20130822
  Transmission Date: 20140515
  Serious: No
  Sender: FDA-Public Use
  Company Number: US-TARO-2012P1065769

PATIENT
  Age: 64 Year
  Sex: Male
  Weight: 74.84 kg

DRUGS (1)
  1. TERBINAFINE HCL CREAM 1% (ATHLETES FOOT) [Suspect]
     Indication: TINEA CRURIS
     Route: 061
     Dates: start: 20121119, end: 20121126

REACTIONS (2)
  - Medication residue present [Recovered/Resolved]
  - Product adhesion issue [Recovered/Resolved]
